FAERS Safety Report 7525435-X (Version None)
Quarter: 2011Q2

REPORT INFORMATION
  Report Type: 
  Country: None (occurrence: None)
  Receive Date: 20110606
  Receipt Date: 20110601
  Transmission Date: 20111010
  Serious: Yes (Other)
  Sender: FDA-Public Use
  Company Number: AU-PFIZER INC-2011099198

PATIENT
  Age: 33 Year
  Sex: Female
  Weight: 50 kg

DRUGS (2)
  1. VARENICLINE TARTRATE [Suspect]
     Indication: SMOKING CESSATION THERAPY
     Dosage: 0.5 MG, 2X/DAY
     Route: 048
     Dates: start: 20110201, end: 20110215
  2. VENTOLIN HFA [Concomitant]
     Indication: ASTHMA
     Dosage: 100 UG PER DOSE, TWO DOSES FOUR TIMES DAILY AS NEEDED
     Route: 055
     Dates: start: 20110403

REACTIONS (5)
  - ANGER [None]
  - PSYCHOTIC DISORDER [None]
  - PERSONALITY CHANGE [None]
  - HALLUCINATION, VISUAL [None]
  - DEPRESSION [None]
